FAERS Safety Report 13932774 (Version 2)
Quarter: 2017Q4

REPORT INFORMATION
  Report Type: Spontaneous
  Country: US (occurrence: US)
  Receive Date: 20170904
  Receipt Date: 20171130
  Transmission Date: 20180320
  Serious: Yes (Other)
  Sender: FDA-Public Use
  Company Number: US-SUN PHARMACEUTICAL INDUSTRIES LTD-2017US-148913

PATIENT
  Age: 62 Year
  Sex: Male

DRUGS (1)
  1. FERROUS SULFATE. [Suspect]
     Active Substance: FERROUS SULFATE
     Indication: IRON DEFICIENCY ANAEMIA
     Dosage: UNK
     Route: 065

REACTIONS (1)
  - Gastritis [Unknown]
